FAERS Safety Report 4281926-9 (Version None)
Quarter: 2004Q1

REPORT INFORMATION
  Report Type: 
  Country: None (occurrence: None)
  Receive Date: 20040128
  Receipt Date: 20040116
  Transmission Date: 20041129
  Serious: Yes (Hospitalization, Other)
  Sender: FDA-Public Use
  Company Number: DSA_70177_2004

PATIENT
  Age: 37 Year
  Sex: Female

DRUGS (11)
  1. AZATHIOPRINE [Suspect]
     Indication: SYSTEMIC LUPUS ERYTHEMATOSUS
     Dosage: 125 MG QDAY
     Dates: start: 20000201, end: 20000501
  2. AZATHIOPRINE [Suspect]
     Indication: SYSTEMIC LUPUS ERYTHEMATOSUS
     Dosage: 100 MG DAILY
     Dates: start: 19991001, end: 20000201
  3. HYDROXYCHLOROQUINE [Suspect]
     Indication: SYSTEMIC LUPUS ERYTHEMATOSUS
     Dosage: 400 MG QDAY
     Dates: start: 20000301, end: 20000501
  4. PREDNISONE [Suspect]
     Indication: SYSTEMIC LUPUS ERYTHEMATOSUS
     Dosage: 10 MG QDAY
     Dates: start: 19990101
  5. QUINAPRIL HYDROCHLORIDE [Concomitant]
  6. ATENOLOL [Concomitant]
  7. AMLODIPINE BESYLATE [Concomitant]
  8. CALCITRIOL [Concomitant]
  9. ALENDRONATE SODIUM [Concomitant]
  10. ASPIRIN [Concomitant]
  11. MULTI-VITAMINS [Concomitant]

REACTIONS (5)
  - CATARACT SUBCAPSULAR [None]
  - CYTOMEGALOVIRUS CHORIORETINITIS [None]
  - OPTIC DISC DRUSEN [None]
  - OPTIC DISC HAEMORRHAGE [None]
  - VITRITIS [None]
